FAERS Safety Report 5940999-5 (Version None)
Quarter: 2008Q4

REPORT INFORMATION
  Report Type: 
  Country: None (occurrence: None)
  Receive Date: 20081104
  Receipt Date: 20081030
  Transmission Date: 20090506
  Serious: Yes (Life-Threatening, Hospitalization)
  Sender: FDA-Public Use
  Company Number: PHHY2008FR25567

PATIENT
  Sex: Female

DRUGS (5)
  1. LEPONEX [Suspect]
     Indication: PSYCHOTIC DISORDER
     Dosage: 175 MG/DAY (75 MG + 100 MG)
     Dates: start: 20080922, end: 20081009
  2. LEPONEX [Suspect]
     Indication: AGGRESSION
  3. TRILEPTAL [Concomitant]
  4. RIVOTRIL [Concomitant]
  5. HYDREA [Concomitant]

REACTIONS (14)
  - ABDOMINAL DISTENSION [None]
  - BLOOD PRESSURE DECREASED [None]
  - FAECALOMA [None]
  - ILEUS PARALYTIC [None]
  - INTESTINAL OBSTRUCTION [None]
  - MALAISE [None]
  - MEGACOLON [None]
  - METABOLIC ACIDOSIS [None]
  - PALLOR [None]
  - PERITONEAL EFFUSION [None]
  - SEPSIS [None]
  - SEPTIC SHOCK [None]
  - TACHYCARDIA [None]
  - TACHYPNOEA [None]
